FAERS Safety Report 6173418-7 (Version None)
Quarter: 2009Q2

REPORT INFORMATION
  Report Type: 
  Country: None (occurrence: None)
  Receive Date: 20090428
  Receipt Date: 20090417
  Transmission Date: 20091009
  Serious: Yes (Death)
  Sender: FDA-Public Use
  Company Number: GXKR2009IT04871

PATIENT
  Age: 48 Year
  Sex: Female

DRUGS (2)
  1. CEFTRIAXONE [Suspect]
     Indication: BRONCHITIS CHRONIC
     Dosage: 1 G, INTRAMUSCULAR
     Route: 030
     Dates: start: 20090316, end: 20090316
  2. SEREVENT [Concomitant]

REACTIONS (1)
  - ANAPHYLACTIC SHOCK [None]
